FAERS Safety Report 4793936-3 (Version None)
Quarter: 2005Q4

REPORT INFORMATION
  Report Type: 
  Country: None (occurrence: None)
  Receive Date: 20051006
  Receipt Date: 20051003
  Transmission Date: 20060501
  Serious: Yes (Other)
  Sender: FDA-Public Use
  Company Number: 2005S1006374

PATIENT
  Age: 25 Year
  Sex: Female

DRUGS (4)
  1. FENTANYL TRANSDERMAL SYSTEM [Suspect]
     Indication: FIBROMYALGIA
     Dosage: Q3D; TDER
     Route: 062
     Dates: start: 20050625
  2. FENTANYL           RANSDERMAL SYSTEM [Suspect]
  3. PARACETAMOL/OXYCODONE HYDROCHLORIDE [Concomitant]
  4. DOCUSATE SODIUM [Concomitant]

REACTIONS (7)
  - CARDIAC DISORDER [None]
  - CONVULSION [None]
  - DRUG LEVEL INCREASED [None]
  - DRUG WITHDRAWAL SYNDROME [None]
  - FEELING HOT AND COLD [None]
  - HYPERHIDROSIS [None]
  - THERAPEUTIC RESPONSE DECREASED [None]
